FAERS Safety Report 21932029 (Version 2)
Quarter: 2023Q1

REPORT INFORMATION
  Report Type: Spontaneous
  Country: US (occurrence: US)
  Receive Date: 20230131
  Receipt Date: 20230202
  Transmission Date: 20230418
  Serious: Yes (Other)
  Sender: FDA-Public Use
  Company Number: US-PFIZER INC-202300039763

PATIENT
  Age: 71 Year
  Sex: Male
  Weight: 133.36 kg

DRUGS (6)
  1. PAXLOVID [Suspect]
     Active Substance: NIRMATRELVIR\RITONAVIR
     Indication: COVID-19 treatment
     Dosage: [PF-07321332 300 MG]/[RITONAVIR 100 MG]; 2X/DAY
     Dates: start: 2022, end: 202212
  2. AZITHROMYCIN [Suspect]
     Active Substance: AZITHROMYCIN
     Indication: COVID-19
     Dosage: 250 MG, 1X/DAY
  3. SIMVASTATIN [Suspect]
     Active Substance: SIMVASTATIN
     Dosage: 40 MG, 1X/DAY
  4. ASPIRIN [Concomitant]
     Active Substance: ASPIRIN
     Dosage: UNK (SINCE HE WAS 20 YEARS OLD)
  5. BYSTOLIC [Concomitant]
     Active Substance: NEBIVOLOL HYDROCHLORIDE
     Indication: Blood pressure abnormal
     Dosage: 5 MG, 2X/DAY (FOR 4-5 YEARS)
  6. KLONOPIN [Concomitant]
     Active Substance: CLONAZEPAM
     Dosage: 0.5 MG OR 1 ONCE A DAY (30 YEARS)

REACTIONS (8)
  - Babesiosis [Unknown]
  - Liver injury [Unknown]
  - Rash macular [Unknown]
  - Pruritus [Unknown]
  - Panic reaction [Unknown]
  - Mental disorder [Unknown]
  - Blood test abnormal [Unknown]
  - Contraindicated product administered [Unknown]

NARRATIVE: CASE EVENT DATE: 20220101
